FAERS Safety Report 5883939-X (Version None)
Quarter: 2008Q3

REPORT INFORMATION
  Report Type: 
  Country: None (occurrence: None)
  Receive Date: 20080915
  Receipt Date: 20080908
  Transmission Date: 20090109
  Serious: Yes (Hospitalization)
  Sender: FDA-Public Use
  Company Number: B0535593A

PATIENT
  Age: 50 Year
  Sex: Male

DRUGS (6)
  1. EPZICOM [Suspect]
     Indication: HIV INFECTION
     Dosage: 1TAB PER DAY
     Route: 048
     Dates: start: 20060112
  2. NORVIR [Suspect]
     Indication: HIV INFECTION
     Dosage: 100MG PER DAY
     Route: 048
     Dates: start: 20060112
  3. REYATAZ [Suspect]
     Indication: HIV INFECTION
     Dosage: 300MG PER DAY
     Route: 048
     Dates: start: 20060112, end: 20070806
  4. COMELIAN [Concomitant]
     Indication: RENAL DISORDER
     Dosage: 100MG THREE TIMES PER DAY
     Route: 048
     Dates: end: 20070704
  5. AMOBAN [Concomitant]
     Indication: INSOMNIA
     Dosage: 7.5MG PER DAY
     Route: 048
  6. TANATRIL [Concomitant]
     Indication: IGA NEPHROPATHY
     Dosage: 2.5MG THREE TIMES PER DAY
     Route: 048
     Dates: end: 20070704

REACTIONS (3)
  - ABDOMINAL PAIN [None]
  - CHOLELITHIASIS [None]
  - PANCREATITIS ACUTE [None]
